FAERS Safety Report 9034018 (Version 1)
Quarter: 2013Q1

REPORT INFORMATION
  Report Type: Spontaneous
  Country: US (occurrence: None)
  Receive Date: 20130116
  Receipt Date: 20130116
  Transmission Date: 20140127
  Serious: Yes (Other)
  Sender: FDA-Public Use
  Company Number: None

PATIENT
  Sex: Male

DRUGS (1)
  1. TASIGNA 150MG NOVARTIS [Suspect]
     Indication: CHRONIC MYELOID LEUKAEMIA
     Dosage: 300 MG  BID  PO
     Route: 048
     Dates: start: 20121124, end: 20121222

REACTIONS (2)
  - Blister [None]
  - Rash pruritic [None]
